FAERS Safety Report 9163271 (Version 1)
Quarter: 2013Q1

REPORT INFORMATION
  Report Type: Spontaneous
  Country: JP (occurrence: JP)
  Receive Date: 20130314
  Receipt Date: 20130314
  Transmission Date: 20140127
  Serious: Yes (Other)
  Sender: FDA-Public Use
  Company Number: JP-GLAXOSMITHKLINE-B0873457A

PATIENT
  Sex: Male

DRUGS (2)
  1. ZANTAC [Suspect]
     Indication: GASTRITIS
     Dosage: 150MG PER DAY
     Route: 048
     Dates: start: 2011
  2. ZANTAC [Suspect]
     Indication: GASTRITIS
     Route: 048
     Dates: start: 2011

REACTIONS (2)
  - Gastric ulcer [Unknown]
  - Gastritis atrophic [Unknown]
